FAERS Safety Report 7263682-5 (Version None)
Quarter: 2011Q1

REPORT INFORMATION
  Report Type: 
  Country: None (occurrence: None)
  Receive Date: 20110130
  Receipt Date: 20101216
  Transmission Date: 20110831
  Serious: No
  Sender: FDA-Public Use
  Company Number: US-ABBOTT-10P-163-0692221-00

PATIENT
  Weight: 102.15 kg

DRUGS (4)
  1. ADVAIR [Concomitant]
     Indication: ASTHMA
     Dosage: 500/50 TWICE A DAY
     Route: 055
  2. PROBIOTICS [Concomitant]
     Indication: CROHN'S DISEASE
     Dosage: UNKNOWN BRAND
     Route: 048
  3. HUMIRA [Suspect]
     Indication: CROHN'S DISEASE
     Route: 058
     Dates: start: 20080101
  4. IMURAN [Concomitant]
     Indication: CROHN'S DISEASE
     Route: 048

REACTIONS (2)
  - CROHN'S DISEASE [None]
  - INJECTION SITE PAIN [None]
